FAERS Safety Report 4920375-4 (Version None)
Quarter: 2006Q1

REPORT INFORMATION
  Report Type: 
  Country: None (occurrence: None)
  Receive Date: 20060223
  Receipt Date: 20050912
  Transmission Date: 20060701
  Serious: Yes (Hospitalization, Other)
  Sender: FDA-Public Use
  Company Number: US-MERCK-0509USA01745

PATIENT
  Age: 54 Year
  Sex: Female
  Weight: 108 kg

DRUGS (43)
  1. ATROVENT [Concomitant]
     Indication: ASTHMA
     Route: 065
  2. FLOVENT [Concomitant]
     Indication: ASTHMA
     Route: 065
  3. IMIPRAMINE HYDROCHLORIDE [Concomitant]
     Indication: BLADDER DISORDER
     Route: 065
  4. VIOXX [Suspect]
     Indication: ARTHRITIS
     Route: 048
     Dates: start: 19990101, end: 20040930
  5. SPIRIVA [Concomitant]
     Indication: ASTHMA
     Route: 055
  6. ADVAIR DISKUS 100/50 [Concomitant]
     Indication: ASTHMA
     Route: 065
  7. ALBUTEROL [Concomitant]
     Indication: ASTHMA
     Route: 055
  8. NASACORT AQ [Concomitant]
     Indication: ASTHMA
     Route: 065
  9. NASACORT AQ [Concomitant]
     Indication: HYPERSENSITIVITY
     Route: 065
  10. LOPID [Concomitant]
     Indication: BLOOD CHOLESTEROL INCREASED
     Route: 065
  11. ALEXAN (SPIRONOLACTONE) [Concomitant]
     Indication: RENAL DISORDER
     Route: 065
  12. ALEXAN (SPIRONOLACTONE) [Concomitant]
     Indication: OEDEMA
     Route: 065
  13. LASIX [Concomitant]
     Indication: OEDEMA
     Route: 065
  14. ASPIRIN [Concomitant]
     Indication: ANTICOAGULANT THERAPY
     Route: 065
  15. ASPIRIN [Concomitant]
     Indication: PAIN MANAGEMENT
     Route: 065
  16. TOPROL-XL [Concomitant]
     Indication: ANGINA PECTORIS
     Route: 065
  17. PLAVIX [Concomitant]
     Indication: ANTICOAGULANT THERAPY
     Route: 065
  18. FLEXERIL [Concomitant]
     Indication: PAIN MANAGEMENT
     Route: 065
  19. GLUCOPHAGE [Concomitant]
     Indication: DIABETES MELLITUS
     Route: 065
  20. PRINIVIL [Concomitant]
     Indication: RENAL DISORDER
     Route: 048
  21. PRINIVIL [Concomitant]
     Indication: BLOOD PRESSURE
     Route: 048
  22. AMARYL [Concomitant]
     Indication: DIABETES MELLITUS
     Route: 065
  23. ZOCOR [Concomitant]
     Indication: BLOOD CHOLESTEROL INCREASED
     Route: 048
  24. OXYBUTYNIN [Concomitant]
     Indication: RENAL DISORDER
     Route: 065
  25. OXYBUTYNIN [Concomitant]
     Indication: BLADDER DISORDER
     Route: 065
  26. ISOSORBIDE [Concomitant]
     Indication: BLOOD PRESSURE
     Route: 065
  27. ZOLOFT [Concomitant]
     Indication: DEPRESSION
     Route: 065
  28. PROTONIX [Concomitant]
     Indication: GASTROOESOPHAGEAL REFLUX DISEASE
     Route: 065
  29. SINGULAIR [Concomitant]
     Indication: ASTHMA
     Route: 065
  30. SINGULAIR [Concomitant]
     Indication: HYPERSENSITIVITY
     Route: 065
  31. PREMARIN [Concomitant]
     Indication: BLOOD OESTROGEN
     Route: 065
  32. PREMARIN [Concomitant]
     Indication: HYSTERECTOMY
     Route: 065
  33. CLOTRIMAZOLE [Concomitant]
     Indication: FUNGAL INFECTION
     Route: 065
  34. CLOTRIMAZOLE [Concomitant]
     Route: 065
  35. NITROQUICK [Concomitant]
     Indication: ANGINA PECTORIS
     Route: 065
  36. CELEBREX [Suspect]
     Route: 065
     Dates: start: 20000801
  37. LANTUS [Concomitant]
     Indication: DIABETES MELLITUS
     Route: 065
  38. NPH INSULIN [Concomitant]
     Indication: DIABETES MELLITUS
     Route: 065
  39. HUMALOG [Concomitant]
     Indication: DIABETES MELLITUS
     Route: 065
  40. IMDUR [Concomitant]
     Indication: PALPITATIONS
     Route: 065
  41. IMDUR [Concomitant]
     Indication: ANGINA PECTORIS
     Route: 065
  42. NITROGLYCERIN [Concomitant]
     Indication: PALPITATIONS
     Route: 065
  43. NITROGLYCERIN [Concomitant]
     Indication: ANGINA PECTORIS
     Route: 065

REACTIONS (27)
  - ANGINA PECTORIS [None]
  - AORTIC ANEURYSM [None]
  - ASTHMA [None]
  - BLOOD TRIGLYCERIDES INCREASED [None]
  - BRONCHITIS [None]
  - CARDIAC MURMUR [None]
  - CHEST PAIN [None]
  - CHRONIC OBSTRUCTIVE PULMONARY DISEASE [None]
  - CORONARY ARTERY DISEASE [None]
  - CORONARY ARTERY OCCLUSION [None]
  - CORONARY ARTERY STENOSIS [None]
  - DRUG HYPERSENSITIVITY [None]
  - DYSPEPSIA [None]
  - DYSPNOEA [None]
  - FINGER AMPUTATION [None]
  - GASTROINTESTINAL DISORDER [None]
  - GASTROOESOPHAGEAL REFLUX DISEASE [None]
  - HEART RATE IRREGULAR [None]
  - HEPATIC STEATOSIS [None]
  - MYOCARDIAL INFARCTION [None]
  - OSTEOARTHRITIS [None]
  - PERIPHERAL VASCULAR DISORDER [None]
  - RENAL DISORDER [None]
  - THYROID DISORDER [None]
  - URINARY INCONTINENCE [None]
  - URINARY TRACT INFECTION [None]
  - VENTRICULAR HYPERTROPHY [None]
